FAERS Safety Report 5604486-6 (Version None)
Quarter: 2008Q1

REPORT INFORMATION
  Report Type: 
  Country: None (occurrence: None)
  Receive Date: 20080123
  Receipt Date: 20080123
  Transmission Date: 20080703
  Serious: Yes (Other)
  Sender: FDA-Public Use
  Company Number: None

PATIENT
  Sex: Female

DRUGS (2)
  1. LUPRON DEPOT [Suspect]
     Indication: MENOPAUSAL SYMPTOMS
     Dosage: INJECT 3.75MG MONTHLY IM
     Route: 030
  2. LUPRON DEPOT [Suspect]
     Indication: MENORRHAGIA
     Dosage: INJECT 3.75MG MONTHLY IM
     Route: 030

REACTIONS (3)
  - ASTHMA [None]
  - BRONCHITIS [None]
  - RASH PUSTULAR [None]
